FAERS Safety Report 8231298-X (Version None)
Quarter: 2012Q1

REPORT INFORMATION
  Report Type: 
  Country: None (occurrence: None)
  Receive Date: 20120321
  Receipt Date: 20120312
  Transmission Date: 20120608
  Serious: Yes (Other)
  Sender: FDA-Public Use
  Company Number: AUR-APL-2012-01416

PATIENT
  Age: 32 Year
  Sex: Female
  Weight: 78.91 kg

DRUGS (10)
  1. CLONAZEPAM [Concomitant]
  2. VENLAFAXINE [Suspect]
     Indication: PANIC ATTACK
     Dosage: 225 MG (225 MG, 1 IN 1 D), ORAL
     Route: 048
     Dates: start: 20110901, end: 20110901
  3. VENLAFAXINE [Suspect]
     Indication: DEPRESSION
     Dosage: 225 MG (225 MG, 1 IN 1 D), ORAL
     Route: 048
     Dates: start: 20110901, end: 20110901
  4. VENLAFAXINE [Suspect]
     Indication: ANXIETY
     Dosage: 225 MG (225 MG, 1 IN 1 D), ORAL
     Route: 048
     Dates: start: 20110901, end: 20110901
  5. EFFEXOR XR [Suspect]
     Indication: ANXIETY
     Dosage: 225 MG (225 MG, 1 IN 1 D), ORAL, 225 MG (225 MG, 1 IN 1 D), ORAL
     Route: 048
     Dates: start: 20100101, end: 20110901
  6. EFFEXOR XR [Suspect]
     Indication: DEPRESSION
     Dosage: 225 MG (225 MG, 1 IN 1 D), ORAL, 225 MG (225 MG, 1 IN 1 D), ORAL
     Route: 048
     Dates: start: 20100101, end: 20110901
  7. EFFEXOR XR [Suspect]
     Indication: PANIC ATTACK
     Dosage: 225 MG (225 MG, 1 IN 1 D), ORAL, 225 MG (225 MG, 1 IN 1 D), ORAL
     Route: 048
     Dates: start: 20100101, end: 20110901
  8. EFFEXOR XR [Suspect]
     Indication: ANXIETY
     Dosage: 225 MG (225 MG, 1 IN 1 D), ORAL, 225 MG (225 MG, 1 IN 1 D), ORAL
     Route: 048
     Dates: start: 20110901
  9. EFFEXOR XR [Suspect]
     Indication: DEPRESSION
     Dosage: 225 MG (225 MG, 1 IN 1 D), ORAL, 225 MG (225 MG, 1 IN 1 D), ORAL
     Route: 048
     Dates: start: 20110901
  10. EFFEXOR XR [Suspect]
     Indication: PANIC ATTACK
     Dosage: 225 MG (225 MG, 1 IN 1 D), ORAL, 225 MG (225 MG, 1 IN 1 D), ORAL
     Route: 048
     Dates: start: 20110901

REACTIONS (5)
  - MALAISE [None]
  - CONDITION AGGRAVATED [None]
  - HYPERSENSITIVITY [None]
  - IRRITABLE BOWEL SYNDROME [None]
  - GASTRIC ULCER [None]
